FAERS Safety Report 8252768-4 (Version None)
Quarter: 2012Q2

REPORT INFORMATION
  Report Type: 
  Country: None (occurrence: None)
  Receive Date: 20120402
  Receipt Date: 20110412
  Transmission Date: 20120825
  Serious: No
  Sender: FDA-Public Use
  Company Number: US-ABBOTT-11P-163-0804428-00

PATIENT
  Sex: Male
  Weight: 73.636 kg

DRUGS (4)
  1. CALCIUM PANTOTHENATE AND NICOTINAMIDE AND PYRIDOXINE HYDROCHLORIDE AND [Concomitant]
     Indication: VITAMIN SUPPLEMENTATION
     Dosage: DAILY DOSE:  UNKNOWN; FREQUENCY: ONCE A DAY
     Route: 048
  2. ACETYLSALICYLIC ACID [Concomitant]
     Indication: CARDIAC DISORDER
     Dosage: DAILY DOSE: 81 MILLIGRAM(S)
     Route: 048
  3. TESTOSTERONE [Suspect]
     Indication: BLOOD TESTOSTERONE DECREASED
     Dosage: DAILY DOSE:  UNKNOWN; 5 GM PACKETS, FREQUENCY: ONCE IN TWO DAYS; AS USED: 1 PERCENT
     Route: 062
     Dates: start: 20110201
  4. ASCORBIC ACID [Concomitant]
     Indication: VITAMIN SUPPLEMENTATION
     Dosage: DAILY DOSE: 1000 MILLIGRAM(S)
     Route: 048

REACTIONS (1)
  - ASPARTATE AMINOTRANSFERASE INCREASED [None]
